FAERS Safety Report 15662516 (Version 3)
Quarter: 2018Q4

REPORT INFORMATION
  Report Type: Report from Study
  Country: US (occurrence: US)
  Receive Date: 20181127
  Receipt Date: 20181227
  Transmission Date: 20190205
  Serious: Yes (Hospitalization, Other)
  Sender: FDA-Public Use
  Company Number: US-ASTRAZENECA-2018SF23898

PATIENT
  Age: 27742 Day
  Sex: Female
  Weight: 55.2 kg

DRUGS (3)
  1. LYNPARZA [Suspect]
     Active Substance: OLAPARIB
     Indication: OVARIAN CANCER
     Route: 048
     Dates: start: 20180704
  2. LYNPARZA [Suspect]
     Active Substance: OLAPARIB
     Indication: OVARIAN CANCER
     Dosage: 300 MG BY MOUTH DAILY IN THE MORNING AND 200 MG BY MOUTH DAILY IN THE EVENING
     Route: 048
  3. LYNPARZA [Suspect]
     Active Substance: OLAPARIB
     Indication: OVARIAN CANCER
     Route: 048

REACTIONS (13)
  - Blood cholesterol increased [Unknown]
  - Vulvovaginal pain [Not Recovered/Not Resolved]
  - Blood iron decreased [Not Recovered/Not Resolved]
  - Accident [Unknown]
  - Memory impairment [Unknown]
  - Blood pressure abnormal [Unknown]
  - Headache [Not Recovered/Not Resolved]
  - Asthenia [Not Recovered/Not Resolved]
  - Cough [Unknown]
  - Anaemia [Recovered/Resolved]
  - Dizziness [Unknown]
  - Fatigue [Unknown]
  - Vaginal disorder [Unknown]

NARRATIVE: CASE EVENT DATE: 20180906
